FAERS Safety Report 16576422 (Version 1)
Quarter: 2019Q3

REPORT INFORMATION
  Report Type: Spontaneous
  Country: US (occurrence: US)
  Receive Date: 20190716
  Receipt Date: 20190716
  Transmission Date: 20191004
  Serious: No
  Sender: FDA-Public Use
  Company Number: US-ASTRAZENECA-2019SF00873

PATIENT
  Age: 76 Year
  Sex: Female

DRUGS (1)
  1. NEXIUM 24HR [Suspect]
     Active Substance: ESOMEPRAZOLE MAGNESIUM
     Indication: GASTROOESOPHAGEAL REFLUX DISEASE
     Dosage: TAKE IT IN COURSE OF TREATMENT FOR 14 DAYS, THEN SHE LET IT GO FOR COUPLE OF DAYS, THEN STARTED
     Route: 048
     Dates: start: 2018

REACTIONS (5)
  - Reaction to excipient [Unknown]
  - Abdominal pain upper [Unknown]
  - Nausea [Unknown]
  - Product taste abnormal [Unknown]
  - Malaise [Unknown]

NARRATIVE: CASE EVENT DATE: 2018
